FAERS Safety Report 10007084 (Version 2)
Quarter: 2014Q1

REPORT INFORMATION
  Report Type: Spontaneous
  Country: PT (occurrence: PT)
  Receive Date: 20140313
  Receipt Date: 20140327
  Transmission Date: 20141002
  Serious: Yes (Other)
  Sender: FDA-Public Use
  Company Number: PT-TEVA-467801ISR

PATIENT
  Age: 78 Year
  Sex: Male
  Weight: 76 kg

DRUGS (11)
  1. BICALUTAMIDA TEVA [Suspect]
     Indication: PROSTATE CANCER
     Dosage: 50 MILLIGRAM DAILY;
     Route: 048
     Dates: start: 20130717
  2. DECAPEPTYL LP 11,25 MG [Suspect]
     Indication: PROSTATE CANCER
     Dosage: POSOLOGY ONCE EVERY 3 MONTHS , POWDER AND SOLVENT FOR SUSPENSION FOR INJECTION
     Route: 030
     Dates: start: 20130716
  3. MYSOLINE [Concomitant]
     Indication: PROSTATE CANCER
     Route: 048
  4. GABAPENTINA GABAMOX [Concomitant]
     Indication: PROSTATE CANCER
     Route: 048
  5. GABAPENTINA GABAMOX [Concomitant]
     Route: 048
  6. ZONEGRAN [Concomitant]
     Indication: PROSTATE CANCER
     Route: 048
  7. PRITORPLUS [Concomitant]
     Indication: PROSTATE CANCER
     Route: 048
  8. AMLODIPINA GENERIS 10 MG COMPRIMIDOS [Concomitant]
     Indication: PROSTATE CANCER
     Route: 048
  9. DAONIL [Concomitant]
     Indication: PROSTATE CANCER
     Route: 048
  10. PRAVASTATINA [Concomitant]
     Indication: PROSTATE CANCER
  11. ZYLORIC [Concomitant]
     Indication: PROSTATE CANCER
     Route: 048

REACTIONS (2)
  - Leukopenia [Not Recovered/Not Resolved]
  - Haemoglobin decreased [Not Recovered/Not Resolved]
